FAERS Safety Report 6765197-7 (Version None)
Quarter: 2010Q2

REPORT INFORMATION
  Report Type: 
  Country: None (occurrence: None)
  Receive Date: 20100610
  Receipt Date: 20100610
  Transmission Date: 20101027
  Serious: Yes (Life-Threatening, Hospitalization, Other)
  Sender: FDA-Public Use
  Company Number: None

PATIENT
  Age: 22 Year
  Sex: Female
  Weight: 58.9676 kg

DRUGS (1)
  1. OCELLA BARR [Suspect]
     Dates: start: 20081208, end: 20100522

REACTIONS (3)
  - BACK PAIN [None]
  - PULMONARY EMBOLISM [None]
  - TRAUMATIC LUNG INJURY [None]
